FAERS Safety Report 14081717 (Version 1)
Quarter: 2017Q4

REPORT INFORMATION
  Report Type: Spontaneous
  Country: US (occurrence: US)
  Receive Date: 20171012
  Receipt Date: 20171012
  Transmission Date: 20180321
  Serious: No
  Sender: FDA-Public Use
  Company Number: US-MYLANLABS-2017M1044068

PATIENT
  Age: 56 Year
  Sex: Male

DRUGS (1)
  1. LEVETIRACETAM. [Suspect]
     Active Substance: LEVETIRACETAM
     Indication: PRODUCT USED FOR UNKNOWN INDICATION
     Dosage: UNK

REACTIONS (7)
  - Muscular weakness [Unknown]
  - Paraesthesia [Unknown]
  - Fall [Unknown]
  - Muscle tightness [Unknown]
  - Pain in extremity [Unknown]
  - Hypoaesthesia [Unknown]
  - Tremor [Unknown]
